FAERS Safety Report 12083575 (Version 1)
Quarter: 2016Q1

REPORT INFORMATION
  Report Type: Spontaneous
  Country: US (occurrence: US)
  Receive Date: 20160217
  Receipt Date: 20160217
  Transmission Date: 20160526
  Serious: No
  Sender: FDA-Public Use
  Company Number: US-MYLANLABS-2015M1046821

PATIENT
  Age: 79 Year
  Sex: Female

DRUGS (1)
  1. EPIPEN [Suspect]
     Active Substance: EPINEPHRINE
     Dosage: 0.3 MG, PRN
     Route: 030
     Dates: start: 20151221, end: 20151221

REACTIONS (3)
  - Heart rate increased [Recovered/Resolved]
  - Accidental exposure to product [Recovered/Resolved]
  - Expired product administered [Recovered/Resolved]

NARRATIVE: CASE EVENT DATE: 20151221
